FAERS Safety Report 8547321-9 (Version None)
Quarter: 2012Q3

REPORT INFORMATION
  Report Type: 
  Country: None (occurrence: None)
  Receive Date: 20120727
  Receipt Date: 20120319
  Transmission Date: 20120928
  Serious: No
  Sender: FDA-Public Use
  Company Number: US-ASTRAZENECA-2012SE18692

PATIENT
  Sex: Male

DRUGS (2)
  1. SEROQUEL [Suspect]
     Indication: PARKINSON'S DISEASE
     Route: 048
     Dates: start: 20120304, end: 20120315
  2. SEROQUEL [Suspect]
     Indication: DEPRESSION
     Route: 048
     Dates: start: 20120304, end: 20120315

REACTIONS (5)
  - BACK PAIN [None]
  - OFF LABEL USE [None]
  - DISTURBANCE IN ATTENTION [None]
  - TREMOR [None]
  - HYPERHIDROSIS [None]
